FAERS Safety Report 4354837-8 (Version None)
Quarter: 2004Q2

REPORT INFORMATION
  Report Type: 
  Country: None (occurrence: None)
  Receive Date: 20040507
  Receipt Date: 20030321
  Transmission Date: 20050107
  Serious: Yes (Other)
  Sender: FDA-Public Use
  Company Number: FR-GLAXOSMITHKLINE-B0295757A

PATIENT
  Age: 77 Year
  Sex: Female

DRUGS (11)
  1. AVANDIA [Suspect]
     Dosage: 4MG SEE DOSAGE TEXT
     Route: 048
     Dates: start: 20020809, end: 20031006
  2. DILTIAZEM HCL [Suspect]
     Dosage: 300MG PER DAY
     Route: 048
     Dates: end: 20030202
  3. GLUCOPHAGE [Concomitant]
     Dosage: 500MG THREE TIMES PER DAY
     Route: 048
     Dates: end: 20030202
  4. GLUCOR [Concomitant]
     Dosage: 100MG THREE TIMES PER DAY
     Route: 048
     Dates: end: 20021003
  5. LASIX [Concomitant]
     Dosage: 20MG SEE DOSAGE TEXT
     Route: 048
  6. TRIATEC [Concomitant]
     Dosage: 5MG TWICE PER DAY
     Route: 048
  7. FRACTAL [Concomitant]
     Dosage: 40MG PER DAY
     Route: 048
  8. FONZYLANE [Concomitant]
     Indication: ARTERITIS
     Dosage: 300MG TWICE PER DAY
     Route: 048
  9. CORDIPATCH [Concomitant]
     Indication: ANGINA PECTORIS
     Dosage: 10MG TWICE PER DAY
     Route: 062
  10. HYPERIUM [Concomitant]
     Dosage: 1MG SEE DOSAGE TEXT
     Route: 048
  11. AMAREL [Concomitant]
     Dosage: 2MG PER DAY
     Route: 048

REACTIONS (2)
  - DRUG INTERACTION [None]
  - WEIGHT INCREASED [None]
